FAERS Safety Report 12477461 (Version 1)
Quarter: 2016Q2

REPORT INFORMATION
  Report Type: Spontaneous
  Country: US (occurrence: US)
  Receive Date: 20160617
  Receipt Date: 20160617
  Transmission Date: 20160815
  Serious: No
  Sender: FDA-Public Use
  Company Number: US-MYLANLABS-2016M1015652

PATIENT
  Age: 81 Year
  Sex: Male

DRUGS (2)
  1. CYCLOBENZAPRINE HYDROCHLORIDE TABLETS, USP [Suspect]
     Active Substance: CYCLOBENZAPRINE
     Indication: OFF LABEL USE
  2. CYCLOBENZAPRINE HYDROCHLORIDE TABLETS, USP [Suspect]
     Active Substance: CYCLOBENZAPRINE
     Indication: BACK PAIN
     Dosage: 10 MG, QD
     Route: 048
     Dates: start: 20160403, end: 20160411

REACTIONS (1)
  - Drug ineffective for unapproved indication [Recovered/Resolved]

NARRATIVE: CASE EVENT DATE: 20160403
